FAERS Safety Report 21946538 (Version 1)
Quarter: 2023Q1

REPORT INFORMATION
  Report Type: Spontaneous
  Country: US (occurrence: US)
  Receive Date: 20230202
  Receipt Date: 20230202
  Transmission Date: 20230418
  Serious: No
  Sender: FDA-Public Use
  Company Number: US-INCYTE CORPORATION-2022IN007909

PATIENT

DRUGS (1)
  1. OPZELURA [Suspect]
     Active Substance: RUXOLITINIB PHOSPHATE
     Indication: Eczema
     Dosage: BID
     Route: 061
     Dates: start: 20220812

REACTIONS (4)
  - Product physical issue [Unknown]
  - Skin laceration [Unknown]
  - Swelling [Unknown]
  - Infection [Unknown]

NARRATIVE: CASE EVENT DATE: 20220801
